FAERS Safety Report 5806361-0 (Version None)
Quarter: 2008Q3

REPORT INFORMATION
  Report Type: 
  Country: None (occurrence: None)
  Receive Date: 20080710
  Receipt Date: 20080701
  Transmission Date: 20090109
  Serious: Yes (Hospitalization)
  Sender: FDA-Public Use
  Company Number: ES-ABBOTT-08P-144-0444217-00

PATIENT
  Sex: Male

DRUGS (9)
  1. RITONAVIR SOFT GELATIN CAPSULES [Suspect]
     Indication: LIPODYSTROPHY ACQUIRED
     Route: 048
     Dates: start: 20060425, end: 20070824
  2. ATAZANAVIR SULFATE [Concomitant]
     Indication: LIPODYSTROPHY ACQUIRED
     Route: 048
     Dates: start: 20060425, end: 20070821
  3. LAMIVUDINE [Concomitant]
     Indication: LIPODYSTROPHY ACQUIRED
     Route: 048
     Dates: start: 20060425, end: 20070824
  4. TENOFOVIR DISOPROXIL FUMARATE [Concomitant]
     Indication: LIPODYSTROPHY ACQUIRED
     Route: 048
     Dates: start: 20060425, end: 20070824
  5. DIAZEPAM [Concomitant]
     Indication: DRUG USE FOR UNKNOWN INDICATION
     Dates: start: 20070402
  6. CITALOPRAM HYDROBROMIDE [Concomitant]
     Indication: DRUG USE FOR UNKNOWN INDICATION
     Dates: start: 20061101
  7. CHLORAMPHENICOL PALMITATE [Concomitant]
     Indication: DRUG USE FOR UNKNOWN INDICATION
     Dates: start: 20070101
  8. LORAZEPAM [Concomitant]
     Indication: DRUG USE FOR UNKNOWN INDICATION
     Dates: start: 20070101
  9. OMEPRAZOLE [Concomitant]
     Indication: DRUG USE FOR UNKNOWN INDICATION
     Dates: start: 20070101

REACTIONS (1)
  - DRUG ABUSE [None]
